FAERS Safety Report 24583763 (Version 2)
Quarter: 2024Q4

REPORT INFORMATION
  Report Type: Spontaneous
  Country: ES (occurrence: ES)
  Receive Date: 20241106
  Receipt Date: 20241114
  Transmission Date: 20250115
  Serious: Yes (Other)
  Sender: AUROBINDO
  Company Number: ES-ELI_LILLY_AND_COMPANY-ES202410009856

PATIENT
  Sex: Female

DRUGS (2)
  1. LETROZOLE [Suspect]
     Active Substance: LETROZOLE
     Indication: Product used for unknown indication
     Dosage: UNK, UNKNOWN
     Route: 065
     Dates: start: 202409
  2. ABEMACICLIB [Suspect]
     Active Substance: ABEMACICLIB
     Indication: Product used for unknown indication
     Dosage: UNK, UNKNOWN
     Route: 065
     Dates: start: 202410

REACTIONS (18)
  - Anal fissure [Unknown]
  - Haemorrhoids [Unknown]
  - Weight decreased [Unknown]
  - Abdominal pain upper [Recovered/Resolved]
  - Diarrhoea [Recovered/Resolved]
  - Constipation [Unknown]
  - Vomiting [Recovered/Resolved]
  - Headache [Unknown]
  - Drug intolerance [Unknown]
  - Suffocation feeling [Not Recovered/Not Resolved]
  - Tremor [Unknown]
  - Palpitations [Unknown]
  - Neck pain [Unknown]
  - Musculoskeletal stiffness [Unknown]
  - Chest pain [Unknown]
  - Nausea [Unknown]
  - Fatigue [Unknown]
  - Dizziness [Unknown]

NARRATIVE: CASE EVENT DATE: 20241014
